FAERS Safety Report 16622943 (Version 2)
Quarter: 2019Q3

REPORT INFORMATION
  Report Type: Report from Study
  Country: US (occurrence: US)
  Receive Date: 20190723
  Receipt Date: 20190828
  Transmission Date: 20191004
  Serious: Yes (Hospitalization)
  Sender: FDA-Public Use
  Company Number: US-BAYER-2019-138288

PATIENT
  Age: 14 Year
  Sex: Male
  Weight: 49.89 kg

DRUGS (20)
  1. ADEMPAS [Suspect]
     Active Substance: RIOCIGUAT
     Indication: PULMONARY ARTERIAL HYPERTENSION
     Dosage: 0.5 MG, TID
     Route: 048
     Dates: start: 20190607
  2. SODIUM CHLORIDE. [Concomitant]
     Active Substance: SODIUM CHLORIDE
     Dosage: 4 ML, BID
     Route: 055
  3. ALBUTEROL HFA [Concomitant]
     Active Substance: ALBUTEROL SULFATE
     Indication: CHEST PAIN
  4. FLUTICASONE. [Concomitant]
     Active Substance: FLUTICASONE
     Dosage: SPRAY TWO SPRAY(S),QD
     Route: 055
  5. RANITIDINE. [Concomitant]
     Active Substance: RANITIDINE
     Dosage: (150 MG TOTAL) BY MOUTH EVERY 12 HOUR AND TAKE 75 MG BY MORNING
  6. REMODULIN [Concomitant]
     Active Substance: TREPROSTINIL
     Dosage: UNK
  7. ALBUTEROL HFA [Concomitant]
     Active Substance: ALBUTEROL SULFATE
     Indication: WHEEZING
     Dosage: 2 PUFF(S), Q4HR
  8. ALBUTEROL [SALBUTAMOL] [Concomitant]
     Active Substance: ALBUTEROL
     Dosage: 2.5 MG, TID
     Route: 055
  9. AZITHROMYCIN ANHYDROUS. [Concomitant]
     Active Substance: AZITHROMYCIN ANHYDROUS
     Dosage: 500 MG, TIW
     Route: 048
  10. MELATONIN [Concomitant]
     Active Substance: MELATONIN
     Dosage: THREE TABLET(S) (9 MG TOTAL, 5 MG AT BEDTIME
     Route: 048
  11. ALBUTEROL HFA [Concomitant]
     Active Substance: ALBUTEROL SULFATE
     Indication: DYSPNOEA
  12. LETAIRIS [Concomitant]
     Active Substance: AMBRISENTAN
     Dosage: 10 MG, QD
     Route: 048
  13. DULERA [Concomitant]
     Active Substance: FORMOTEROL FUMARATE DIHYDRATE\MOMETASONE FUROATE
     Dosage: 2 PUFF(S), BID
  14. MONTELUKAST [Concomitant]
     Active Substance: MONTELUKAST SODIUM
     Dosage: 10 MG, QD
     Route: 048
  15. TREPROSTINIL. [Concomitant]
     Active Substance: TREPROSTINIL
     Dosage: 2,500 NANOGRAM/MIN
  16. ALBUTEROL HFA [Concomitant]
     Active Substance: ALBUTEROL SULFATE
     Indication: PRODUCTIVE COUGH
  17. OXYGEN. [Concomitant]
     Active Substance: OXYGEN
     Dosage: 1-5 LITERS PER MINUTE, CONTINUOUSLY
  18. METOPROLOL SUCCINATE. [Concomitant]
     Active Substance: METOPROLOL SUCCINATE
     Dosage: 25 MG, QD
     Route: 048
  19. FOLIC ACID. [Concomitant]
     Active Substance: FOLIC ACID
     Dosage: 1 DF, QD
  20. MULTIPLE VITAMINS WITH MINERALS [Concomitant]
     Active Substance: MINERALS\VITAMINS
     Dosage: 1 DF, QD

REACTIONS (4)
  - Acute chest syndrome [None]
  - Off label use [None]
  - Dyspnoea [None]
  - Product administered to patient of inappropriate age [None]
